FAERS Safety Report 5193804-1 (Version None)
Quarter: 2006Q4

REPORT INFORMATION
  Report Type: 
  Country: None (occurrence: None)
  Receive Date: 20061221
  Receipt Date: 20061211
  Transmission Date: 20070319
  Serious: Yes (Hospitalization)
  Sender: FDA-Public Use
  Company Number: MEDI-0005208

PATIENT
  Age: 65 Year
  Sex: Female
  Weight: 68.4932 kg

DRUGS (2)
  1. ETHYOL [Suspect]
     Indication: PROPHYLAXIS
     Dosage: 500 MG, 1 IN 1 D, SUBCUTANEOUS
     Route: 058
     Dates: start: 20061103, end: 20061110
  2. ETHYOL [Suspect]
     Indication: PROPHYLAXIS
     Dosage: 500 MG, 1 IN 1 D, SUBCUTANEOUS
     Route: 058
     Dates: start: 20061111, end: 20061113

REACTIONS (4)
  - FEELING COLD [None]
  - PYREXIA [None]
  - RASH GENERALISED [None]
  - TREMOR [None]
